FAERS Safety Report 15360682 (Version 1)
Quarter: 2018Q3

REPORT INFORMATION
  Report Type: Spontaneous
  Country: US (occurrence: US)
  Receive Date: 20180907
  Receipt Date: 20180907
  Transmission Date: 20181010
  Serious: Yes (Hospitalization)
  Sender: FDA-Public Use
  Company Number: US-ROCHE-2181464

PATIENT
  Age: 76 Year
  Sex: Male

DRUGS (2)
  1. ACTIVASE [Suspect]
     Active Substance: ALTEPLASE
     Indication: CEREBROVASCULAR ACCIDENT
     Route: 040
     Dates: start: 20180823
  2. ACTIVASE [Suspect]
     Active Substance: ALTEPLASE
     Indication: MENTAL STATUS CHANGES
     Route: 042
     Dates: start: 20180823

REACTIONS (2)
  - Headache [Unknown]
  - Dizziness [Unknown]

NARRATIVE: CASE EVENT DATE: 20180823
